FAERS Safety Report 8902495 (Version 1)
Quarter: 2012Q4

REPORT INFORMATION
  Report Type: 
  Country: SE (occurrence: SE)
  Receive Date: 20121112
  Receipt Date: 20121112
  Transmission Date: 20130627
  Serious: Yes (Hospitalization)
  Sender: FDA-Public Use
  Company Number: SE-PFIZER INC-2012277345

PATIENT
  Age: 69 Year
  Sex: Male
  Weight: 82.1 kg

DRUGS (8)
  1. GENOTROPIN [Suspect]
     Dosage: 0.3 mg, 1x/day, 7 injections/week
     Route: 058
     Dates: start: 20010918
  2. HYDROCORTONE [Concomitant]
     Indication: ACTH DECREASED
     Dosage: UNK
     Dates: start: 20030716
  3. TESTOSTERONE [Concomitant]
     Indication: LUTEINISING HORMONE DECREASED
     Dosage: UNK
     Dates: start: 19660101
  4. TESTOSTERONE [Concomitant]
     Indication: FOLLICLE STIMULATING HORMONE DECREASED
  5. TESTOSTERONE [Concomitant]
     Indication: TESTICULAR HYPOGONADISM
  6. IMOVANE [Concomitant]
     Indication: SLEEPLESSNESS
     Dosage: UNK
     Dates: start: 20030929
  7. LEVOTHYROXINE [Concomitant]
     Indication: THYROID DISORDER
     Dosage: UNK
     Dates: start: 19660101
  8. LEVOTHYROXINE [Concomitant]
     Indication: PRIMARY HYPOTHYROIDISM

REACTIONS (1)
  - Borrelia infection [Unknown]
